FAERS Safety Report 9350659 (Version 2)
Quarter: 2013Q2

REPORT INFORMATION
  Report Type: Spontaneous
  Country: FR (occurrence: FR)
  Receive Date: 20130617
  Receipt Date: 20130621
  Transmission Date: 20140414
  Serious: Yes (Hospitalization)
  Sender: FDA-Public Use
  Company Number: PHHY2013FR059946

PATIENT
  Age: 83 Year
  Sex: Female

DRUGS (8)
  1. SANDOSTATIN [Suspect]
     Dates: start: 20130210
  2. LOVENOX [Suspect]
     Indication: PULMONARY EMBOLISM
     Dosage: 0.4 MG /12 HOURS BID
     Route: 058
     Dates: start: 20130208, end: 20130210
  3. SEROPLEX [Suspect]
     Dosage: 20 MG, BID
     Route: 048
     Dates: start: 20130128
  4. ASPEGIC [Suspect]
  5. TAHOR [Concomitant]
     Dosage: 10 MG, QD
     Route: 048
     Dates: start: 20130128
  6. DOMPERIDONE [Concomitant]
     Dosage: UNK UKN, UNK
     Dates: start: 20130128
  7. PERINDOPRIL ARROW [Concomitant]
     Dosage: 4 MG, BID
     Dates: start: 20130129
  8. PYOSTACINE [Concomitant]
     Dosage: 1000 MG, TID
     Route: 048
     Dates: start: 20130129

REACTIONS (1)
  - Gastric ulcer haemorrhage [Recovered/Resolved]
